FAERS Safety Report 8015420-6 (Version None)
Quarter: 2011Q4

REPORT INFORMATION
  Report Type: 
  Country: None (occurrence: None)
  Receive Date: 20111230
  Receipt Date: 20111219
  Transmission Date: 20120403
  Serious: Yes (Hospitalization)
  Sender: FDA-Public Use
  Company Number: HK-BRISTOL-MYERS SQUIBB COMPANY-16311722

PATIENT
  Age: 57 Year
  Sex: Male
  Weight: 60 kg

DRUGS (4)
  1. CISPLATIN [Suspect]
     Indication: NASOPHARYNGEAL CANCER
     Dates: start: 20111129, end: 20111129
  2. FLUOROURACIL [Suspect]
     Indication: NASOPHARYNGEAL CANCER
     Dates: start: 20111129, end: 20111202
  3. CETUXIMAB [Suspect]
     Indication: NASOPHARYNGEAL CANCER
     Dates: start: 20111129
  4. DOCETAXEL [Suspect]
     Indication: NASOPHARYNGEAL CANCER
     Dates: start: 20111129, end: 20111129

REACTIONS (3)
  - VOMITING [None]
  - HYPONATRAEMIA [None]
  - NEUTROPENIA [None]
